FAERS Safety Report 16209002 (Version 2)
Quarter: 2019Q2

REPORT INFORMATION
  Report Type: Spontaneous
  Country: FR (occurrence: FR)
  Receive Date: 20190417
  Receipt Date: 20190607
  Transmission Date: 20190711
  Serious: Yes (Hospitalization)
  Sender: FDA-Public Use
  Company Number: FR-AMREGENT-20190699

PATIENT
  Age: 27 Year
  Sex: Female

DRUGS (1)
  1. FERINJECT [Suspect]
     Active Substance: FERRIC CARBOXYMALTOSE
     Dosage: 1 GM
     Route: 041

REACTIONS (6)
  - Back pain [Unknown]
  - Skin reaction [Unknown]
  - Maternal exposure during pregnancy [Recovered/Resolved]
  - Tachycardia [Unknown]
  - Haemoglobin abnormal [Unknown]
  - Dyspnoea [Unknown]
